FAERS Safety Report 12374989 (Version 2)
Quarter: 2016Q3

REPORT INFORMATION
  Report Type: Spontaneous
  Country: US (occurrence: US)
  Receive Date: 20160517
  Receipt Date: 20160718
  Transmission Date: 20161109
  Serious: Yes (Other)
  Sender: FDA-Public Use
  Company Number: US-AUROBINDO-AUR-APL-2016-05964

PATIENT
  Age: 58 Year
  Sex: Female
  Weight: 70.31 kg

DRUGS (6)
  1. GABAPENTIN CAPSULES 300 MG [Suspect]
     Active Substance: GABAPENTIN
     Indication: NEUROPATHY PERIPHERAL
     Dosage: 300 MG, TWO TIMES A DAY
     Route: 048
     Dates: start: 201604
  2. EFFEXOR [Concomitant]
     Active Substance: VENLAFAXINE HYDROCHLORIDE
     Indication: MAJOR DEPRESSION
     Dosage: 225 MG, UNK
  3. EFFEXOR [Concomitant]
     Active Substance: VENLAFAXINE HYDROCHLORIDE
     Indication: POST-TRAUMATIC STRESS DISORDER
  4. SERTRALINE [Concomitant]
     Active Substance: SERTRALINE HYDROCHLORIDE
     Indication: DEPRESSION
     Dosage: 100 MG, UNK
     Route: 065
  5. NAPROXEN. [Concomitant]
     Active Substance: NAPROXEN
     Indication: INTERVERTEBRAL DISC DEGENERATION
     Dosage: 500 MG, TWO TIMES A DAY
     Route: 065
  6. BUSPAR [Concomitant]
     Active Substance: BUSPIRONE HYDROCHLORIDE
     Indication: ANXIETY
     Dosage: 30 MG, DAILY
     Route: 065

REACTIONS (14)
  - Therapy change [Not Recovered/Not Resolved]
  - Hypersensitivity [Not Recovered/Not Resolved]
  - Headache [Not Recovered/Not Resolved]
  - Tremor [Not Recovered/Not Resolved]
  - Blood pressure increased [Unknown]
  - Loss of consciousness [Recovered/Resolved]
  - Eye pain [Not Recovered/Not Resolved]
  - Ear pain [Not Recovered/Not Resolved]
  - Pyrexia [Recovered/Resolved]
  - Vision blurred [Unknown]
  - Feeling abnormal [Not Recovered/Not Resolved]
  - Nausea [Recovering/Resolving]
  - Eating disorder [Unknown]
  - Malaise [Unknown]

NARRATIVE: CASE EVENT DATE: 201603
